FAERS Safety Report 19468518 (Version 1)
Quarter: 2021Q2

REPORT INFORMATION
  Report Type: Spontaneous
  Country: US (occurrence: US)
  Receive Date: 20210628
  Receipt Date: 20210628
  Transmission Date: 20210717
  Serious: Yes (Hospitalization)
  Sender: FDA-Public Use
  Company Number: US-ENDO PHARMACEUTICALS INC-2021-009888

PATIENT
  Age: 19 Year
  Sex: Female
  Weight: 67 kg

DRUGS (1)
  1. BUPROPION HYDROCHLORIDE. [Suspect]
     Active Substance: BUPROPION HYDROCHLORIDE
     Indication: PRODUCT USED FOR UNKNOWN INDICATION
     Dosage: 7.95 G (53 TABLETS), SINGLE
     Route: 065

REACTIONS (3)
  - Serotonin syndrome [Recovered/Resolved]
  - Supraventricular tachycardia [Recovered/Resolved]
  - Overdose [Recovered/Resolved]
